FAERS Safety Report 4429410-3 (Version None)
Quarter: 2004Q3

REPORT INFORMATION
  Report Type: 
  Country: None (occurrence: None)
  Receive Date: 20040818
  Receipt Date: 20040818
  Transmission Date: 20050211
  Serious: Yes (Other)
  Sender: FDA-Public Use
  Company Number: None

PATIENT
  Age: 37 Year
  Sex: Female
  Weight: 90.7194 kg

DRUGS (2)
  1. ZIPROSIDONE HCL 80 MG PO BID [Suspect]
     Indication: SCHIZOAFFECTIVE DISORDER
     Dosage: PO BID
     Route: 048
  2. RISPERIDONE 3 MG PO HS [Suspect]
     Dosage: PO HS
     Route: 048

REACTIONS (3)
  - COGWHEEL RIGIDITY [None]
  - NYSTAGMUS [None]
  - TREMOR [None]
